FAERS Safety Report 6363119-4 (Version None)
Quarter: 2009Q3

REPORT INFORMATION
  Report Type: 
  Country: None (occurrence: None)
  Receive Date: 20090919
  Receipt Date: 20090617
  Transmission Date: 20100115
  Serious: No
  Sender: FDA-Public Use
  Company Number: US-ABBOTT-09P-163-0580693-00

PATIENT
  Sex: Female
  Weight: 52.21 kg

DRUGS (3)
  1. HUMIRA [Suspect]
     Indication: COLITIS ULCERATIVE
     Route: 058
     Dates: start: 20090612
  2. PREDNISONE [Concomitant]
     Indication: COLITIS ULCERATIVE
  3. ASACOL [Concomitant]
     Indication: COLITIS ULCERATIVE

REACTIONS (2)
  - DRUG DOSE OMISSION [None]
  - INJECTION SITE HAEMATOMA [None]
